FAERS Safety Report 16191885 (Version 2)
Quarter: 2019Q2

REPORT INFORMATION
  Report Type: Spontaneous
  Country: ES (occurrence: ES)
  Receive Date: 20190412
  Receipt Date: 20190426
  Transmission Date: 20190711
  Serious: Yes (Death, Hospitalization, Other)
  Sender: FDA-Public Use
  Company Number: ES-SHIRE-ES201911903

PATIENT

DRUGS (4)
  1. HARVONI [Concomitant]
     Active Substance: LEDIPASVIR\SOFOSBUVIR
     Indication: HEPATITIS C VIRUS TEST POSITIVE
  2. FEIBA NF [Suspect]
     Active Substance: ANTI-INHIBITOR COAGULANT COMPLEX
     Indication: PROPHYLAXIS
  3. FEIBA NF [Suspect]
     Active Substance: ANTI-INHIBITOR COAGULANT COMPLEX
     Indication: HAEMOPHILIA A WITH ANTI FACTOR VIII
     Dosage: 7000 INTERNATIONAL UNIT, QOD
     Route: 065
     Dates: start: 20190405
  4. FEIBA NF [Suspect]
     Active Substance: ANTI-INHIBITOR COAGULANT COMPLEX
     Indication: CENTRAL NERVOUS SYSTEM HAEMORRHAGE
     Dosage: 50 INTERNATIONAL UNIT/KILOGRAM, EVERY 6 HOURS
     Route: 042
     Dates: end: 20190406

REACTIONS (2)
  - Brain death [Unknown]
  - Head injury [Unknown]

NARRATIVE: CASE EVENT DATE: 20190405
